FAERS Safety Report 9387605 (Version 1)
Quarter: 2013Q2

REPORT INFORMATION
  Report Type: Spontaneous
  Country: FR (occurrence: None)
  Receive Date: 20130621
  Receipt Date: 20130621
  Transmission Date: 20140414
  Serious: Yes (Death)
  Sender: FDA-Public Use
  Company Number: GAM-176-13-FR

PATIENT
  Age: 71 Year
  Sex: Female

DRUGS (8)
  1. PARACETAMOL [Concomitant]
  2. ACETYLSALICYCLIC ACID [Concomitant]
  3. BACLOFEN [Concomitant]
  4. HYDROCORTISONE [Concomitant]
  5. CEFTRIAXONE [Concomitant]
  6. NORADRENALINE [Concomitant]
  7. OCTAGAM [Suspect]
     Indication: HYPOGAMMAGLOBULINAEMIA
     Dosage: 1/D
     Route: 042
     Dates: start: 20131105, end: 20131105
  8. VENLAFAXINE [Concomitant]

REACTIONS (2)
  - Acute respiratory distress syndrome [None]
  - Acute pulmonary oedema [None]
